FAERS Safety Report 24230835 (Version 1)
Quarter: 2024Q3

REPORT INFORMATION
  Report Type: Report from Study
  Country: US (occurrence: US)
  Receive Date: 20240821
  Receipt Date: 20240821
  Transmission Date: 20241016
  Serious: Yes (Other)
  Sender: ROCHE
  Company Number: US-ROCHE-3495664

PATIENT
  Age: 55 Year
  Sex: Female

DRUGS (6)
  1. OCREVUS [Suspect]
     Active Substance: OCRELIZUMAB
     Indication: Relapsing multiple sclerosis
     Route: 065
     Dates: start: 20210308
  2. OCREVUS [Suspect]
     Active Substance: OCRELIZUMAB
     Route: 042
     Dates: start: 2020
  3. MODAFINIL [Concomitant]
     Active Substance: MODAFINIL
  4. CEFIXIME [Concomitant]
     Active Substance: CEFIXIME
  5. LOSARTAN [Concomitant]
     Active Substance: LOSARTAN\LOSARTAN POTASSIUM
  6. PREGABALIN [Concomitant]
     Active Substance: PREGABALIN

REACTIONS (5)
  - Oropharyngeal pain [Not Recovered/Not Resolved]
  - Upper respiratory tract infection [Not Recovered/Not Resolved]
  - Fungal infection [Recovered/Resolved]
  - Tinea infection [Recovered/Resolved]
  - Multiple sclerosis [Unknown]
